FAERS Safety Report 5526383-7 (Version None)
Quarter: 2007Q4

REPORT INFORMATION
  Report Type: 
  Country: None (occurrence: None)
  Receive Date: 20071127
  Receipt Date: 20071126
  Transmission Date: 20080405
  Serious: Yes (Other)
  Sender: FDA-Public Use
  Company Number: FR-BRISTOL-MYERS SQUIBB COMPANY-13988258

PATIENT
  Age: 44 Year
  Sex: Female
  Weight: 90 kg

DRUGS (3)
  1. COUMADIN [Suspect]
     Indication: INTERNATIONAL NORMALISED RATIO
     Dates: start: 20060901
  2. COUMADIN [Suspect]
     Indication: PHLEBITIS
     Dates: start: 20060901
  3. PAROXETINE [Concomitant]
     Dosage: 1 DOSAGE FORM: 1/2 TAB
     Dates: start: 20030101

REACTIONS (3)
  - PAIN IN EXTREMITY [None]
  - PERIODONTAL DESTRUCTION [None]
  - TOOTH LOSS [None]
